FAERS Safety Report 8200297-6 (Version None)
Quarter: 2012Q1

REPORT INFORMATION
  Report Type: 
  Country: None (occurrence: None)
  Receive Date: 20120306
  Receipt Date: 20120224
  Transmission Date: 20120608
  Serious: Yes (Other)
  Sender: FDA-Public Use
  Company Number: DKLU1077304

PATIENT

DRUGS (1)
  1. INDOCIN [Suspect]
     Indication: PATENT DUCTUS ARTERIOSUS
     Dosage: 0.1 MG/KG MILLIGRAM(S) /KILOGRAM, 1 IN 1 HR, INTRAVENOUS DRIP
     Route: 041

REACTIONS (1)
  - CORONARY ARTERY INSUFFICIENCY [None]
